FAERS Safety Report 9153012 (Version 1)
Quarter: 2013Q1

REPORT INFORMATION
  Report Type: Spontaneous
  Country: IN (occurrence: IN)
  Receive Date: 20130310
  Receipt Date: 20130310
  Transmission Date: 20140127
  Serious: Yes (Death)
  Sender: FDA-Public Use
  Company Number: IN-009507513-1303IND002139

PATIENT
  Age: 56 Year
  Sex: 0

DRUGS (1)
  1. JANUMET [Suspect]
     Dosage: UNK, ONCE
     Route: 048

REACTIONS (1)
  - Hypoglycaemia [Fatal]
